FAERS Safety Report 5113533-X (Version None)
Quarter: 2006Q3

REPORT INFORMATION
  Report Type: 
  Country: None (occurrence: None)
  Receive Date: 20060921
  Receipt Date: 20060921
  Transmission Date: 20061208
  Serious: Yes (Life-Threatening)
  Sender: FDA-Public Use
  Company Number: None

PATIENT
  Age: 54 Year
  Sex: Female
  Weight: 59 kg

DRUGS (11)
  1. BACTRIM [Suspect]
     Indication: PNEUMOCYSTIS JIROVECI PNEUMONIA
     Dosage: DS ONE Q M-W-F
     Dates: start: 20060531, end: 20060603
  2. BACTRIM [Suspect]
     Indication: PROPHYLAXIS
     Dosage: DS ONE Q M-W-F
     Dates: start: 20060531, end: 20060603
  3. LOPINAVIR/RITONAVIR [Concomitant]
  4. ABACAVIR/LAMIVUDINE [Concomitant]
  5. APAP TAB [Concomitant]
  6. ACYCLOVIR [Concomitant]
  7. CEFEPIME [Concomitant]
  8. INSULIN [Concomitant]
  9. LOVAZEPAM [Concomitant]
  10. METRONIDAZOLE [Concomitant]
  11. HEPARIN [Concomitant]

REACTIONS (3)
  - PLATELET COUNT DECREASED [None]
  - RED BLOOD CELL COUNT DECREASED [None]
  - WHITE BLOOD CELL COUNT DECREASED [None]
